FAERS Safety Report 15298229 (Version 1)
Quarter: 2018Q3

REPORT INFORMATION
  Report Type: Spontaneous
  Country: US (occurrence: US)
  Receive Date: 20180820
  Receipt Date: 20180820
  Transmission Date: 20181010
  Serious: No
  Sender: FDA-Public Use
  Company Number: US-ALLERGAN-1830488US

PATIENT
  Sex: Female
  Weight: 78.9 kg

DRUGS (12)
  1. NEURONTIN [Concomitant]
     Active Substance: GABAPENTIN
  2. KLONOPIN [Concomitant]
     Active Substance: CLONAZEPAM
  3. RISPERDAL [Concomitant]
     Active Substance: RISPERIDONE
  4. ARMOUR THYROID [Concomitant]
     Active Substance: THYROID, PORCINE
  5. LATUDA [Concomitant]
     Active Substance: LURASIDONE HYDROCHLORIDE
  6. LAMICTAL [Concomitant]
     Active Substance: LAMOTRIGINE
  7. WELLBUTRIN [Concomitant]
     Active Substance: BUPROPION HYDROCHLORIDE
  8. ABILIFY [Concomitant]
     Active Substance: ARIPIPRAZOLE
  9. ADDERALL [Concomitant]
     Active Substance: AMPHETAMINE ASPARTATE\AMPHETAMINE SULFATE\DEXTROAMPHETAMINE SACCHARATE\DEXTROAMPHETAMINE SULFATE
  10. EFFEXOR [Concomitant]
     Active Substance: VENLAFAXINE HYDROCHLORIDE
  11. SAPHRIS [Suspect]
     Active Substance: ASENAPINE MALEATE
     Indication: MAJOR DEPRESSION
     Route: 065
  12. TRAZODONE [Concomitant]
     Active Substance: TRAZODONE HYDROCHLORIDE

REACTIONS (7)
  - Major depression [Unknown]
  - Dependent personality disorder [Unknown]
  - Drug ineffective for unapproved indication [Unknown]
  - Persistent depressive disorder [Unknown]
  - Psychological trauma [Unknown]
  - Off label use [Unknown]
  - Dermatillomania [Unknown]
